FAERS Safety Report 4570992-9 (Version None)
Quarter: 2005Q1

REPORT INFORMATION
  Report Type: 
  Country: None (occurrence: None)
  Receive Date: 20050204
  Receipt Date: 20050126
  Transmission Date: 20050727
  Serious: Yes (Hospitalization)
  Sender: FDA-Public Use
  Company Number: NO-MERCK-0502NOR00002

PATIENT
  Age: 85 Year
  Sex: Male

DRUGS (5)
  1. VIOXX [Suspect]
     Route: 048
     Dates: start: 20031001, end: 20050110
  2. ASPIRIN AND MAGNESIUM OXIDE [Concomitant]
     Route: 048
  3. TOLTERODINE TARTRATE [Concomitant]
     Route: 048
  4. ACETAMINOPHEN AND CODEINE PHOSPHATE [Concomitant]
     Route: 048
  5. TRIMEPRAZINE TARTRATE [Concomitant]
     Route: 048

REACTIONS (1)
  - CEREBROVASCULAR ACCIDENT [None]
